FAERS Safety Report 7312447-4 (Version None)
Quarter: 2011Q1

REPORT INFORMATION
  Report Type: 
  Country: None (occurrence: None)
  Receive Date: 20110224
  Receipt Date: 20101108
  Transmission Date: 20110831
  Serious: No
  Sender: FDA-Public Use
  Company Number: US-MYLANLABS-2010S1020634

PATIENT
  Age: 69 Year
  Sex: Female
  Weight: 90.72 kg

DRUGS (3)
  1. LEVETIRACETAM [Suspect]
     Route: 048
     Dates: start: 20100801, end: 20100901
  2. LEVETIRACETAM [Suspect]
     Indication: CONVULSION
     Route: 048
     Dates: start: 20100601, end: 20100801
  3. DILANTIN [Concomitant]
     Indication: CONVULSION
     Route: 048
     Dates: start: 20100925

REACTIONS (4)
  - PARAESTHESIA [None]
  - RASH [None]
  - PAIN IN EXTREMITY [None]
  - MOBILITY DECREASED [None]
